FAERS Safety Report 15423827 (Version 2)
Quarter: 2018Q4

REPORT INFORMATION
  Report Type: Spontaneous
  Country: US (occurrence: US)
  Receive Date: 20180925
  Receipt Date: 20181106
  Transmission Date: 20190204
  Serious: Yes (Hospitalization, Other)
  Sender: FDA-Public Use
  Company Number: US-ROCHE-2188564

PATIENT
  Age: 10 Year
  Sex: Male
  Weight: 39.5 kg

DRUGS (5)
  1. FLONASE [Concomitant]
     Active Substance: FLUTICASONE PROPIONATE
     Dosage: ONGOING: UNKNOWN
     Route: 045
     Dates: start: 20171201
  2. PULMOZYME [Suspect]
     Active Substance: DORNASE ALFA
     Indication: METABOLIC DISORDER
     Dosage: 1 MG/ML
     Route: 045
     Dates: start: 20171201
  3. AZITHROMYCIN ANHYDROUS. [Concomitant]
     Active Substance: AZITHROMYCIN ANHYDROUS
     Dosage: ONGOING: UNKNOWN
     Route: 048
     Dates: start: 20171201
  4. PULMOZYME [Suspect]
     Active Substance: DORNASE ALFA
     Dosage: ONGOING:UNKNOWN
     Route: 050
     Dates: start: 20171205
  5. ALBUTEROL. [Concomitant]
     Active Substance: ALBUTEROL
     Dosage: ONGOING: UNKNOWN
     Route: 050
     Dates: start: 20171201

REACTIONS (3)
  - Cystic fibrosis [Recovered/Resolved]
  - Off label use [Unknown]
  - Intentional product use issue [Unknown]

NARRATIVE: CASE EVENT DATE: 20180911
